FAERS Safety Report 9451133 (Version 1)
Quarter: 2013Q3

REPORT INFORMATION
  Report Type: Spontaneous
  Country: US (occurrence: US)
  Receive Date: 20130809
  Receipt Date: 20130809
  Transmission Date: 20140515
  Serious: No
  Sender: FDA-Public Use
  Company Number: US-BAXTER-2013BAX013661

PATIENT
  Sex: 0

DRUGS (4)
  1. IFOSFAMIDE FOR INJECTION [Suspect]
     Indication: PRODUCT USED FOR UNKNOWN INDICATION
     Route: 065
     Dates: start: 20130403, end: 20130403
  2. MESNA FOR INJECTION [Suspect]
     Indication: PRODUCT USED FOR UNKNOWN INDICATION
     Route: 065
     Dates: start: 20130403, end: 20130403
  3. 5% DEXTROSE AND 0.45% SODIUM CHLORIDE INJECTION USP [Suspect]
     Indication: MEDICATION DILUTION
     Route: 065
     Dates: start: 20130403, end: 20130403
  4. BACTERIOSTATIC WATER [Suspect]
     Indication: MEDICATION DILUTION
     Route: 065
     Dates: start: 20130403, end: 20130403

REACTIONS (2)
  - Exposure via inhalation [Unknown]
  - No adverse event [Recovered/Resolved]
